FAERS Safety Report 13650675 (Version 1)
Quarter: 2017Q2

REPORT INFORMATION
  Report Type: Spontaneous
  Country: US (occurrence: US)
  Receive Date: 20170614
  Receipt Date: 20170614
  Transmission Date: 20170830
  Serious: Yes (Other)
  Sender: FDA-Public Use
  Company Number: US-IBIGEN-2017.02747

PATIENT
  Age: 64 Year
  Sex: Male

DRUGS (1)
  1. AMPICILLIN [Suspect]
     Active Substance: AMPICILLIN
     Indication: OSTEOMYELITIS
     Dosage: 1 DOSAGE 2 G EVERY 6 HOUR(S)
     Route: 042

REACTIONS (1)
  - Tubulointerstitial nephritis [Unknown]
